FAERS Safety Report 12603294 (Version 4)
Quarter: 2016Q3

REPORT INFORMATION
  Report Type: Report from Study
  Country: US (occurrence: US)
  Receive Date: 20160728
  Receipt Date: 20160818
  Transmission Date: 20161109
  Serious: Yes (Life-Threatening, Hospitalization)
  Sender: FDA-Public Use
  Company Number: US-ACTAVIS-2016-15950

PATIENT
  Age: 52 Year
  Sex: Male
  Weight: 145 kg

DRUGS (10)
  1. TRAMADOL HYDROCHLORIDE (WATSON LABORATORIES) (TRAMADOL HYDROCHLORIDE) TABLET, 50MG [Suspect]
     Active Substance: TRAMADOL HYDROCHLORIDE
     Indication: ARTHRALGIA
     Dosage: 50 MG, AS NEEDED
     Route: 048
     Dates: start: 20160208, end: 20160208
  2. IRON [Concomitant]
     Active Substance: IRON
     Indication: NEPHROGENIC ANAEMIA
     Dosage: UNKNOWN
     Route: 065
  3. HALOPERIDOL LACTATE (WATSON LABORATORIES) [Suspect]
     Active Substance: HALOPERIDOL LACTATE
     Indication: AGITATION
     Dosage: 5 MG, SINGLE
     Route: 042
     Dates: start: 20160210, end: 20160210
  4. HALOPERIDOL LACTATE (WATSON LABORATORIES) [Suspect]
     Active Substance: HALOPERIDOL LACTATE
     Dosage: 10 MG, SINGLE
     Route: 042
     Dates: start: 20160210, end: 20160210
  5. MORPHINE SULFATE (AELLC) [Suspect]
     Active Substance: MORPHINE SULFATE
     Indication: ARTHRALGIA
     Dosage: 2 MG, AS NEEDED
     Route: 042
     Dates: start: 20160207, end: 20160209
  6. EPOETIN ALFA [Suspect]
     Active Substance: ERYTHROPOIETIN
     Indication: NEPHROGENIC ANAEMIA
     Dosage: UNKNOWN
     Route: 042
     Dates: start: 20151218
  7. ALPRAZOLAM (AELLC) [Suspect]
     Active Substance: ALPRAZOLAM
     Indication: AGITATION
     Dosage: 2 MG, AS NEEDED
     Route: 048
     Dates: start: 20160207, end: 20160209
  8. HYDROCODONE-ACETAMINOPHEN (WATSON LABORATORIES) [Suspect]
     Active Substance: ACETAMINOPHEN\HYDROCODONE
     Indication: ARTHRALGIA
     Dosage: 10 MG/ 325 MG, ONCE
     Route: 048
     Dates: start: 20160207, end: 20160207
  9. ATIVAN [Suspect]
     Active Substance: LORAZEPAM
     Indication: AGITATION
     Dosage: 1 MG, 2 DOSES
     Route: 042
     Dates: start: 20160210, end: 20160210
  10. HYDROMORPHONE HYDROCHLORIDE (UNKNOWN) [Suspect]
     Active Substance: HYDROMORPHONE HYDROCHLORIDE
     Indication: ARTHRALGIA
     Dosage: 1 MG, AS NEEDED, EVERY 4 HOURS
     Route: 042
     Dates: start: 20160207, end: 20160210

REACTIONS (11)
  - Osteomyelitis [Recovered/Resolved]
  - Lower limb fracture [None]
  - Chest pain [None]
  - Arthralgia [None]
  - Dyspnoea [None]
  - Fall [None]
  - Atrial flutter [None]
  - Hyperkalaemia [None]
  - Agitation [None]
  - Respiratory arrest [Recovered/Resolved]
  - Pneumonia [None]

NARRATIVE: CASE EVENT DATE: 20160210
